FAERS Safety Report 4356703-0 (Version None)
Quarter: 2004Q2

REPORT INFORMATION
  Report Type: 
  Country: None (occurrence: None)
  Receive Date: 20040507
  Receipt Date: 20040426
  Transmission Date: 20050107
  Serious: Yes (Hospitalization)
  Sender: FDA-Public Use
  Company Number: 04P-163-0259156-00

PATIENT
  Age: 30 Year
  Sex: Male

DRUGS (6)
  1. RITONAVIR SOFT GELATIN CAPSULES (NORVIR) (RITONAVIR) [Suspect]
     Indication: HIV INFECTION
     Dates: start: 20020531
  2. TENOFOVIR DF [Suspect]
     Indication: HIV INFECTION
     Dosage: 300 MG, 1 IN 1 D
     Dates: start: 20031203
  3. SAQUINAVIR [Suspect]
     Indication: HIV INFECTION
     Dates: start: 20020531
  4. LAMIVUDINE [Concomitant]
  5. DIDANOSINE [Concomitant]
  6. STAVUDINE [Concomitant]

REACTIONS (8)
  - ACTIVATED PARTIAL THROMBOPLASTIN TIME ABNORMAL [None]
  - GANGRENE [None]
  - HYPOAESTHESIA [None]
  - MYALGIA [None]
  - PERIPHERAL ISCHAEMIA [None]
  - POPLITEAL PULSE ABNORMAL [None]
  - PYREXIA [None]
  - RADIAL PULSE ABNORMAL [None]
